FAERS Safety Report 9166923 (Version 1)
Quarter: 2013Q1

REPORT INFORMATION
  Report Type: Spontaneous
  Country: FR (occurrence: FR)
  Receive Date: 20130318
  Receipt Date: 20130318
  Transmission Date: 20140127
  Serious: Yes (Hospitalization)
  Sender: FDA-Public Use
  Company Number: PHHY2013FR025366

PATIENT
  Sex: Male

DRUGS (11)
  1. IRINOTECAN [Suspect]
     Indication: COLON CANCER METASTATIC
     Dosage: 258 MG, TOTAL
     Dates: start: 20130212, end: 20130212
  2. ERBITUX [Suspect]
     Indication: COLON CANCER METASTATIC
     Dosage: 475 MG, TOTAL
     Route: 042
     Dates: start: 20130212, end: 20130212
  3. SOLUMEDROL [Concomitant]
     Dosage: UNK UKN, UNK
     Dates: start: 20130212, end: 20130212
  4. TRANXENE [Concomitant]
  5. ZOPHREN [Concomitant]
  6. STAGID [Concomitant]
  7. SKENAN [Concomitant]
  8. LEXOMIL [Concomitant]
  9. IMOVANE [Concomitant]
  10. DAFALGAN [Concomitant]
  11. GAVISCON [Concomitant]

REACTIONS (3)
  - Hypertension [Recovered/Resolved]
  - Tremor [Recovered/Resolved]
  - Hyperhidrosis [Recovered/Resolved]
